FAERS Safety Report 24298020 (Version 1)
Quarter: 2024Q3

REPORT INFORMATION
  Report Type: Spontaneous
  Country: US (occurrence: US)
  Receive Date: 20240909
  Receipt Date: 20240909
  Transmission Date: 20241016
  Serious: No
  Sender: LEO PHARM
  Company Number: US-LEO Pharma-373301

PATIENT
  Age: 24 Year
  Sex: Male

DRUGS (1)
  1. ADBRY [Suspect]
     Active Substance: TRALOKINUMAB-LDRM
     Indication: Dermatitis atopic
     Dosage: 4 SYRINGES ON DAY 1 THEN START MAINTENANCE DOSING AS DIRECTED ON DAY 15; TREATMENT REPORTED AS ONGOI
     Dates: start: 202407

REACTIONS (2)
  - Rash [Unknown]
  - Swelling face [Unknown]
